FAERS Safety Report 21822594 (Version 1)
Quarter: 2023Q1

REPORT INFORMATION
  Report Type: Spontaneous
  Country: BR (occurrence: BR)
  Receive Date: 20230105
  Receipt Date: 20230105
  Transmission Date: 20230417
  Serious: Yes (Other)
  Sender: FDA-Public Use
  Company Number: BR-CELLTRION INC.-2022BR022003

PATIENT

DRUGS (6)
  1. HERZUMA [Suspect]
     Active Substance: TRASTUZUMAB-PKRB
     Indication: Chemotherapy
     Dosage: 590 MILLIGRAM, SINGLE (1 TIME; 590,8MG IV)
     Route: 042
     Dates: start: 20221222
  2. PACLITAXEL [Concomitant]
     Active Substance: PACLITAXEL
     Indication: Chemotherapy
     Dosage: UNK, SINGLE (1 TIME)
     Route: 042
     Dates: start: 20221222, end: 20221222
  3. ACETAMINOPHEN [Concomitant]
     Active Substance: ACETAMINOPHEN
     Indication: Chemotherapy side effect prophylaxis
     Dosage: UNK, SINGLE (1 TIME)
     Route: 048
     Dates: start: 20221222, end: 20221222
  4. DEXAMETHASONE [Concomitant]
     Active Substance: DEXAMETHASONE
     Indication: Chemotherapy side effect prophylaxis
     Dosage: UNK, SINGLE (1 TIME)
     Route: 042
     Dates: start: 20221222, end: 20221222
  5. DIPHENHYDRAMINE [Concomitant]
     Active Substance: DIPHENHYDRAMINE
     Indication: Chemotherapy side effect prophylaxis
     Dosage: UNK, SINGLE (1 TIME)
     Route: 042
     Dates: start: 20221222, end: 20221222
  6. ONDANSETRON [Concomitant]
     Active Substance: ONDANSETRON
     Indication: Chemotherapy side effect prophylaxis
     Dosage: UNK, SINGLE (1 TIME)
     Route: 042
     Dates: start: 20221222, end: 20221222

REACTIONS (5)
  - Flushing [Recovered/Resolved]
  - Feeling cold [Recovered/Resolved]
  - Tremor [Recovered/Resolved]
  - Tachycardia [Recovered/Resolved]
  - Chills [Recovered/Resolved]

NARRATIVE: CASE EVENT DATE: 20221222
